FAERS Safety Report 5497209-5 (Version None)
Quarter: 2007Q4

REPORT INFORMATION
  Report Type: 
  Country: None (occurrence: None)
  Receive Date: 20071025
  Receipt Date: 20060911
  Transmission Date: 20080405
  Serious: No
  Sender: FDA-Public Use
  Company Number: A0619750A

PATIENT
  Age: 73 Year
  Sex: Male

DRUGS (6)
  1. ADVAIR DISKUS 100/50 [Suspect]
     Indication: CHRONIC OBSTRUCTIVE PULMONARY DISEASE
     Dosage: 1PUFF TWICE PER DAY
     Route: 055
     Dates: start: 20060801
  2. LIPITOR [Concomitant]
  3. LISINOPRIL [Concomitant]
  4. DOXAZOSIN MESYLATE [Concomitant]
  5. COSOPT [Concomitant]
  6. LUMIGAN [Concomitant]

REACTIONS (1)
  - DYSPHONIA [None]
